FAERS Safety Report 8619564 (Version 6)
Quarter: 2014Q1

REPORT INFORMATION
  Report Type: Report from Study
  Country: IT (occurrence: IT)
  Receive Date: 20120618
  Receipt Date: 20140107
  Transmission Date: 20141002
  Serious: Yes (Death, Hospitalization, Other)
  Sender: FDA-Public Use
  Company Number: PHHO2012IT007970

PATIENT
  Sex: 0

DRUGS (11)
  1. BLINDED ACZ885 [Suspect]
     Indication: CARDIOVASCULAR EVENT PROPHYLAXIS
     Dosage: CODE NOT BROKEN
     Route: 058
     Dates: start: 20120117, end: 20121123
  2. BLINDED NO TREATMENT RECEIVED [Suspect]
     Indication: CARDIOVASCULAR EVENT PROPHYLAXIS
     Dosage: CODE NOT BROKEN
     Route: 058
     Dates: start: 20120117, end: 20121123
  3. BLINDED PLACEBO [Suspect]
     Indication: CARDIOVASCULAR EVENT PROPHYLAXIS
     Dosage: CODE NOT BROKEN
     Route: 058
     Dates: start: 20120117, end: 20121123
  4. BISOPROLOL [Suspect]
     Indication: CARDIAC FAILURE
     Dosage: 10 MG, QD
     Route: 048
     Dates: start: 20120209, end: 20130122
  5. FUROSEMIDE [Suspect]
     Indication: CARDIAC FAILURE
     Dosage: 125 MG, QD
     Route: 048
     Dates: start: 20120310, end: 20130122
  6. WARFARIN [Suspect]
     Indication: CARDIAC FAILURE
     Dosage: 5 MG, ON DEMAND
     Route: 048
     Dates: start: 20100429, end: 20130122
  7. WARFARIN [Suspect]
     Indication: ATRIAL FIBRILLATION
  8. RAMIPRIL [Concomitant]
     Indication: CARDIAC FAILURE
     Dosage: 2.5 MG, BID
     Route: 048
     Dates: start: 201107
  9. ACETYLSALICYLIC ACID [Concomitant]
     Indication: MYOCARDIAL ISCHAEMIA
     Dosage: 100 MG, QD
     Route: 048
     Dates: start: 20100429, end: 20120520
  10. INSULIN [Concomitant]
     Indication: TYPE 2 DIABETES MELLITUS
     Dosage: ON DEMAND
     Route: 058
     Dates: start: 20120209
  11. CARVEDILOL [Concomitant]
     Indication: CARDIAC FAILURE
     Dosage: 25 MG, QD
     Route: 048
     Dates: start: 20121119, end: 20130122

REACTIONS (4)
  - Salmonellosis [Recovered/Resolved]
  - Syncope [Recovered/Resolved]
  - Cardiac failure [Fatal]
  - Injury [Recovered/Resolved]
